FAERS Safety Report 17937031 (Version 6)
Quarter: 2020Q4

REPORT INFORMATION
  Report Type: Report from Study
  Country: CA (occurrence: CA)
  Receive Date: 20200624
  Receipt Date: 20201105
  Transmission Date: 20210113
  Serious: Yes (Hospitalization, Other)
  Sender: FDA-Public Use
  Company Number: CA-JNJFOC-20200609581

PATIENT
  Age: 52 Year
  Sex: Female
  Weight: 132 kg

DRUGS (1)
  1. REMICADE [Suspect]
     Active Substance: INFLIXIMAB
     Indication: COLITIS ULCERATIVE
     Dosage: PATIENT HAD INFUSION NUMBER 2 ON 19-MAY-2020
     Route: 042
     Dates: start: 20200516

REACTIONS (13)
  - Fatigue [Recovered/Resolved]
  - Anxiety [Unknown]
  - Colitis ulcerative [Recovered/Resolved]
  - Peripheral swelling [Recovered/Resolved]
  - Thrombosis [Recovered/Resolved]
  - Clostridium difficile infection [Unknown]
  - Skin infection [Unknown]
  - Erythema [Recovered/Resolved]
  - Hypotension [Unknown]
  - Gastrointestinal infection [Unknown]
  - Visual impairment [Unknown]
  - Urinary tract infection [Unknown]
  - Contusion [Recovered/Resolved]

NARRATIVE: CASE EVENT DATE: 202006
